FAERS Safety Report 5506761-2 (Version None)
Quarter: 2007Q4

REPORT INFORMATION
  Report Type: 
  Country: None (occurrence: None)
  Receive Date: 20071101
  Receipt Date: 20071023
  Transmission Date: 20080405
  Serious: Yes (Hospitalization)
  Sender: FDA-Public Use
  Company Number: JPI-P-002349

PATIENT
  Age: 38 Year
  Sex: Female
  Weight: 53.978 kg

DRUGS (5)
  1. XYREM [Suspect]
     Indication: DRUG USE FOR UNKNOWN INDICATION
     Dosage: 4.5 GM 2.25 GM, 2 IN 1 D), ORAL
     Route: 048
     Dates: start: 20070719
  2. MODAFINIL [Suspect]
     Indication: NARCOLEPSY
     Dosage: SEE IMAGE
     Route: 048
     Dates: start: 20050901, end: 20060201
  3. MODAFINIL [Suspect]
     Indication: NARCOLEPSY
     Dosage: SEE IMAGE
     Route: 048
     Dates: end: 20070710
  4. MODAFINIL [Suspect]
     Indication: NARCOLEPSY
     Dosage: SEE IMAGE
     Route: 048
     Dates: start: 20061001
  5. MODAFINIL [Suspect]
     Indication: NARCOLEPSY
     Dosage: SEE IMAGE
     Route: 048
     Dates: start: 20070719

REACTIONS (11)
  - ASTHENIA [None]
  - BLOOD MAGNESIUM DECREASED [None]
  - BLOOD POTASSIUM DECREASED [None]
  - BRADYCARDIA [None]
  - CARDIAC FLUTTER [None]
  - CATAPLEXY [None]
  - CONVULSION [None]
  - DISEASE RECURRENCE [None]
  - LOSS OF CONSCIOUSNESS [None]
  - PREGNANCY [None]
  - SYNCOPE [None]
